FAERS Safety Report 4405237-3 (Version None)
Quarter: 2004Q3

REPORT INFORMATION
  Report Type: 
  Country: None (occurrence: None)
  Receive Date: 20040722
  Receipt Date: 20040722
  Transmission Date: 20050211
  Serious: Yes (Disabling, Congenital Anomaly)
  Sender: FDA-Public Use
  Company Number: None

PATIENT
  Sex: Female
  Weight: 43.0917 kg

DRUGS (1)
  1. AOLESTERON [Suspect]
     Indication: IRRITABLE BOWEL SYNDROME
     Dosage: DAILY

REACTIONS (6)
  - ALOPECIA [None]
  - BLINDNESS UNILATERAL [None]
  - COORDINATION ABNORMAL [None]
  - IRRITABLE BOWEL SYNDROME [None]
  - SPEECH DISORDER [None]
  - UNEVALUABLE EVENT [None]
